FAERS Safety Report 7017450-X (Version None)
Quarter: 2010Q3

REPORT INFORMATION
  Report Type: 
  Country: None (occurrence: None)
  Receive Date: 20100928
  Receipt Date: 20100708
  Transmission Date: 20110219
  Serious: Yes (Other)
  Sender: FDA-Public Use
  Company Number: US-BAYER-201013332NA

PATIENT
  Age: 35 Year
  Sex: Female
  Weight: 109 kg

DRUGS (8)
  1. YAZ [Suspect]
     Indication: PRODUCT USED FOR UNKNOWN INDICATION
     Route: 048
  2. YASMIN [Suspect]
     Indication: MENORRHAGIA
     Route: 048
     Dates: start: 20010101, end: 20080101
  3. METFORMIN [Concomitant]
     Indication: TYPE 2 DIABETES MELLITUS
     Route: 065
  4. LANTUS [Concomitant]
     Indication: TYPE 2 DIABETES MELLITUS
  5. LISINOPRIL [Concomitant]
     Indication: HYPERTENSION
     Route: 065
  6. ZOLOFT [Concomitant]
     Route: 065
  7. AEROSOL [Concomitant]
     Indication: ASTHMA
  8. STEROIDS [Concomitant]
     Indication: ASTHMA

REACTIONS (5)
  - CHEST DISCOMFORT [None]
  - DYSPNOEA [None]
  - PULMONARY EMBOLISM [None]
  - TACHYCARDIA [None]
  - WHEEZING [None]
